FAERS Safety Report 6385947-1 (Version None)
Quarter: 2009Q4

REPORT INFORMATION
  Report Type: 
  Country: None (occurrence: None)
  Receive Date: 20091002
  Receipt Date: 20090126
  Transmission Date: 20100525
  Serious: No
  Sender: FDA-Public Use
  Company Number: US-ASTRAZENECA-2009UW02283

PATIENT
  Age: 78 Year
  Sex: Female

DRUGS (3)
  1. ARIMIDEX [Suspect]
     Indication: BREAST CANCER
     Route: 048
     Dates: start: 20081001
  2. XALATAN [Concomitant]
     Indication: GLAUCOMA
  3. AZOPT [Concomitant]
     Indication: GLAUCOMA

REACTIONS (5)
  - ANAEMIA [None]
  - FATIGUE [None]
  - ILL-DEFINED DISORDER [None]
  - MUSCULAR WEAKNESS [None]
  - SKIN DISORDER [None]
